FAERS Safety Report 12002879 (Version 1)
Quarter: 2016Q1

REPORT INFORMATION
  Report Type: Spontaneous
  Country: US (occurrence: US)
  Receive Date: 20160204
  Receipt Date: 20160204
  Transmission Date: 20160526
  Serious: No
  Sender: FDA-Public Use
  Company Number: US-ABBVIE-15K-163-1423740-00

PATIENT
  Age: 53 Year
  Sex: Female

DRUGS (4)
  1. HUMIRA [Suspect]
     Active Substance: ADALIMUMAB
     Indication: PSORIATIC ARTHROPATHY
     Route: 058
     Dates: start: 201401, end: 20150602
  2. CELEBREX [Concomitant]
     Active Substance: CELECOXIB
     Indication: PSORIATIC ARTHROPATHY
  3. LATISSE [Concomitant]
     Active Substance: BIMATOPROST
     Indication: GROWTH OF EYELASHES
  4. TYLENOL [Concomitant]
     Active Substance: ACETAMINOPHEN
     Indication: PSORIATIC ARTHROPATHY

REACTIONS (12)
  - Eye pain [Recovered/Resolved]
  - Facial pain [Recovered/Resolved]
  - Hypoaesthesia oral [Not Recovered/Not Resolved]
  - Headache [Recovered/Resolved]
  - Eye pain [Recovered/Resolved]
  - Facial pain [Recovered/Resolved]
  - Hypoaesthesia [Not Recovered/Not Resolved]
  - Hypoaesthesia oral [Not Recovered/Not Resolved]
  - Hypoaesthesia [Not Recovered/Not Resolved]
  - Intranasal hypoaesthesia [Recovered/Resolved]
  - Viral infection [Unknown]
  - Foreign body in eye [Recovered/Resolved]

NARRATIVE: CASE EVENT DATE: 201412
